FAERS Safety Report 7474297-8 (Version None)
Quarter: 2011Q2

REPORT INFORMATION
  Report Type: 
  Country: None (occurrence: None)
  Receive Date: 20110511
  Receipt Date: 20110502
  Transmission Date: 20111010
  Serious: Yes (Hospitalization)
  Sender: FDA-Public Use
  Company Number: FI-AMGEN-FINSP2011022736

PATIENT
  Age: 43 Year
  Sex: Male

DRUGS (3)
  1. ENBREL [Suspect]
     Indication: JUVENILE ARTHRITIS
     Dosage: 50 MG, WEEKLY
     Route: 058
     Dates: start: 20030101, end: 20101001
  2. ORUDIS                             /00321701/ [Concomitant]
     Dosage: AS NEEDED
  3. PREDNISOLON                        /00016201/ [Concomitant]
     Dosage: 5-10 MG ONCE A DAY

REACTIONS (1)
  - PULMONARY SARCOIDOSIS [None]
